FAERS Safety Report 8799704 (Version 3)
Quarter: 2013Q1

REPORT INFORMATION
  Report Type: Spontaneous
  Country: US (occurrence: FR)
  Receive Date: 20120919
  Receipt Date: 20130321
  Transmission Date: 20140127
  Serious: Yes (Death, Hospitalization)
  Sender: FDA-Public Use
  Company Number: US-009507513-1209USA003114

PATIENT
  Sex: Male

DRUGS (15)
  1. ISENTRESS [Suspect]
     Route: 048
  2. ROVALCYTE [Suspect]
     Route: 042
  3. INTELENCE [Suspect]
     Route: 048
  4. ETHAMBUTOL HYDROCHLORIDE [Suspect]
     Route: 042
  5. AZITHROMYCIN [Suspect]
     Route: 048
  6. EPIVIR [Suspect]
     Route: 048
  7. BACTRIM [Suspect]
     Route: 042
  8. RETROVIR [Suspect]
     Route: 042
  9. ANSATIPINE [Suspect]
     Route: 048
  10. FUZEON [Suspect]
     Route: 058
  11. RITONAVIR [Concomitant]
  12. DARUNAVIR [Concomitant]
  13. MEGESTROL ACETATE [Concomitant]
  14. TRUVADA [Concomitant]
  15. MEDROL [Concomitant]

REACTIONS (3)
  - Leukopenia [Fatal]
  - Pancytopenia [Fatal]
  - Neutropenia [Fatal]
